FAERS Safety Report 17884901 (Version 1)
Quarter: 2020Q2

REPORT INFORMATION
  Report Type: Spontaneous
  Country: GB (occurrence: GB)
  Receive Date: 20200611
  Receipt Date: 20200611
  Transmission Date: 20200714
  Serious: Yes (Other)
  Sender: FDA-Public Use
  Company Number: GB-MYLANLABS-2020M1055408

PATIENT
  Age: 15 Year
  Sex: Male
  Weight: 48.98 kg

DRUGS (1)
  1. ISOTRETINOIN. [Suspect]
     Active Substance: ISOTRETINOIN
     Indication: ACNE
     Dosage: UNK
     Route: 048
     Dates: start: 20150607, end: 20161009

REACTIONS (3)
  - Back pain [Unknown]
  - Thrombocytopenia [Unknown]
  - Body height below normal [Not Recovered/Not Resolved]
